FAERS Safety Report 5218333-8 (Version None)
Quarter: 2007Q1

REPORT INFORMATION
  Report Type: 
  Country: None (occurrence: None)
  Receive Date: 20070123
  Receipt Date: 20070123
  Transmission Date: 20070707
  Serious: No
  Sender: FDA-Public Use
  Company Number: None

PATIENT
  Age: 33 Year
  Sex: Male

DRUGS (2)
  1. AZITHROMYCIN DIHYDRATE [Suspect]
     Dosage: 1250MG PO NOW X1
     Route: 048
     Dates: start: 20060307
  2. SILDENAFIL CITRATE [Suspect]
     Dosage: 20MG Q8H
     Dates: start: 20060305, end: 20060316

REACTIONS (2)
  - SWELLING FACE [None]
  - TONGUE OEDEMA [None]
